FAERS Safety Report 8971122 (Version 2)
Quarter: 2013Q1

REPORT INFORMATION
  Report Type: Spontaneous
  Country: US (occurrence: US)
  Receive Date: 20121218
  Receipt Date: 20130114
  Transmission Date: 20140127
  Serious: Yes (Disabling, Other)
  Sender: FDA-Public Use
  Company Number: US-ASTELLAS-2012US012249

PATIENT
  Age: 81 None
  Sex: Male

DRUGS (1)
  1. XTANDI [Suspect]
     Indication: NEOPLASM PROSTATE
     Dosage: 160 MG, UID/QD
     Route: 048
     Dates: start: 20121109, end: 20121114

REACTIONS (3)
  - Asthenia [Unknown]
  - General physical health deterioration [Recovering/Resolving]
  - Onychomadesis [Unknown]
